FAERS Safety Report 23850053 (Version 1)
Quarter: 2024Q2

REPORT INFORMATION
  Report Type: Spontaneous
  Country: GB (occurrence: GB)
  Receive Date: 20240513
  Receipt Date: 20240513
  Transmission Date: 20240716
  Serious: Yes (Other)
  Sender: FDA-Public Use
  Company Number: GB-ANIPHARMA-2024-UK-000096

PATIENT
  Age: 75 Year
  Sex: Female

DRUGS (2)
  1. ANASTROZOLE [Suspect]
     Active Substance: ANASTROZOLE
     Indication: Hormone receptor positive HER2 negative breast cancer
     Dosage: 1 MG QD
  2. KISQALI [Suspect]
     Active Substance: RIBOCICLIB
     Dosage: 600 MG QD

REACTIONS (2)
  - Cellulitis [Unknown]
  - COVID-19 [Unknown]
